FAERS Safety Report 7706785-0 (Version None)
Quarter: 2011Q3

REPORT INFORMATION
  Report Type: 
  Country: None (occurrence: None)
  Receive Date: 20110824
  Receipt Date: 20110819
  Transmission Date: 20111222
  Serious: Yes (Hospitalization, Other)
  Sender: FDA-Public Use
  Company Number: TH-MERCK-1108USA02139

PATIENT
  Age: 60 Year
  Sex: Female

DRUGS (3)
  1. JANUVIA [Suspect]
     Indication: DIABETES MELLITUS
     Route: 048
     Dates: start: 20100101, end: 20110701
  2. ZOCOR [Suspect]
     Route: 048
     Dates: end: 20110701
  3. ZOCOR [Suspect]
     Indication: HYPERCHOLESTEROLAEMIA
     Route: 048
     Dates: start: 20110701, end: 20110701

REACTIONS (2)
  - MYOCARDIAL INFARCTION [None]
  - RHABDOMYOLYSIS [None]
